FAERS Safety Report 4430795-2 (Version None)
Quarter: 2004Q3

REPORT INFORMATION
  Report Type: 
  Country: None (occurrence: None)
  Receive Date: 20040823
  Receipt Date: 20040708
  Transmission Date: 20050211
  Serious: Yes (Other)
  Sender: FDA-Public Use
  Company Number: US-BRISTOL-MYERS SQUIBB COMPANY-12638078

PATIENT
  Age: 21 Year
  Sex: Female
  Weight: 82 kg

DRUGS (6)
  1. ABILIFY [Suspect]
     Indication: BIPOLAR DISORDER
     Dosage: INCREASED TO 30 MG/DAY ON 04-JUN-04, THEN DISCONTINUED.
     Dates: start: 20040517, end: 20040706
  2. PAXIL [Concomitant]
     Dosage: DECREASED TO 30 MG/DAY
  3. TOPAMAX [Concomitant]
     Dosage: INC TO 300 MG/DAY
  4. LITHIUM CARBONATE [Concomitant]
  5. TRAZODONE HCL [Concomitant]
  6. WELLBUTRIN [Concomitant]

REACTIONS (6)
  - DIZZINESS [None]
  - FATIGUE [None]
  - MUSCLE STRAIN [None]
  - NEUROLEPTIC MALIGNANT SYNDROME [None]
  - RESTLESSNESS [None]
  - TREMOR [None]
